FAERS Safety Report 9387733 (Version 1)
Quarter: 2013Q3

REPORT INFORMATION
  Report Type: Spontaneous
  Country: DE (occurrence: CH)
  Receive Date: 20130708
  Receipt Date: 20130708
  Transmission Date: 20140515
  Serious: Yes (Hospitalization)
  Sender: FDA-Public Use
  Company Number: CH-FRI-1000046447

PATIENT
  Sex: Female
  Weight: 52.4 kg

DRUGS (4)
  1. ROFLUMILAST [Suspect]
     Dosage: 500 MCG
     Route: 048
     Dates: start: 20130421, end: 201304
  2. SPIRIVA [Concomitant]
     Dosage: 18 MCG
     Route: 055
  3. SEREVENT [Concomitant]
     Dosage: 2 DF
     Route: 055
  4. COSAAR PLUS [Concomitant]
     Dosage: 12.5 MG/50 MG
     Route: 048

REACTIONS (6)
  - Hyponatraemia [Recovering/Resolving]
  - Hypokalaemia [Recovered/Resolved]
  - Diarrhoea [Recovered/Resolved]
  - Vomiting [Recovered/Resolved]
  - Nausea [Recovered/Resolved]
  - Myalgia [Recovered/Resolved]
